FAERS Safety Report 11836751 (Version 2)
Quarter: 2016Q1

REPORT INFORMATION
  Report Type: Spontaneous
  Country: US (occurrence: US)
  Receive Date: 20151215
  Receipt Date: 20160210
  Transmission Date: 20160525
  Serious: Yes (Other)
  Sender: FDA-Public Use
  Company Number: US-SA-2015SA208362

PATIENT
  Age: 69 Year
  Sex: Male

DRUGS (4)
  1. LANTUS [Suspect]
     Active Substance: INSULIN GLARGINE
     Indication: TYPE 1 DIABETES MELLITUS
     Dosage: DREQUENCY- DAILY MORNING DOSE:20 UNIT(S)
     Route: 065
  2. CYCLOSPORIN [Concomitant]
     Active Substance: CYCLOSPORINE
  3. HUMALOG [Concomitant]
     Active Substance: INSULIN LISPRO
     Dosage: DOSE: SLIDING SCALE
  4. CYCLOSPORIN [Concomitant]
     Active Substance: CYCLOSPORINE

REACTIONS (7)
  - Renal disorder [Unknown]
  - Blood glucose abnormal [Unknown]
  - Product quality issue [Unknown]
  - Visual impairment [Unknown]
  - Memory impairment [Unknown]
  - Blood glucose decreased [Unknown]
  - Cataract [Unknown]
